FAERS Safety Report 5986267-7 (Version None)
Quarter: 2008Q4

REPORT INFORMATION
  Report Type: 
  Country: None (occurrence: None)
  Receive Date: 20081209
  Receipt Date: 20081202
  Transmission Date: 20090506
  Serious: Yes (Hospitalization)
  Sender: FDA-Public Use
  Company Number: JP-BRISTOL-MYERS SQUIBB COMPANY-14346431

PATIENT
  Age: 58 Year
  Sex: Male

DRUGS (3)
  1. EFAVIRENZ CAPS [Suspect]
     Indication: HIV INFECTION
     Route: 048
     Dates: start: 20070402, end: 20070410
  2. EPIVIR [Suspect]
     Indication: HIV INFECTION
     Dosage: FORM = TABS
     Route: 048
     Dates: start: 20070402, end: 20070410
  3. VIREAD [Suspect]
     Indication: HIV INFECTION
     Dosage: FORM = TABS
     Route: 048
     Dates: start: 20070402, end: 20070410

REACTIONS (2)
  - IMMUNE RECONSTITUTION SYNDROME [None]
  - PNEUMOCYSTIS JIROVECI PNEUMONIA [None]
